FAERS Safety Report 5773748-4 (Version None)
Quarter: 2008Q2

REPORT INFORMATION
  Report Type: 
  Country: None (occurrence: None)
  Receive Date: 20080601
  Receipt Date: 20080305
  Transmission Date: 20081010
  Serious: No
  Sender: FDA-Public Use
  Company Number: US200803001316

PATIENT
  Age: 57 Year
  Sex: Male

DRUGS (4)
  1. BYETTA [Suspect]
     Indication: TYPE 2 DIABETES MELLITUS
     Dosage: 10 UG, 2/D, SUBCUTANEOUS
     Route: 058
     Dates: start: 20060101
  2. GLUCOVANCE [Concomitant]
  3. ASPIRIN /USA/ (ACETYLSALICYLIC ACID) [Concomitant]
  4. ZOLPIDEM TARTRATE [Concomitant]

REACTIONS (4)
  - HEADACHE [None]
  - INJECTION SITE BRUISING [None]
  - INJECTION SITE PAIN [None]
  - INSOMNIA [None]
